FAERS Safety Report 8462693-1 (Version None)
Quarter: 2012Q2

REPORT INFORMATION
  Report Type: 
  Country: None (occurrence: None)
  Receive Date: 20120619
  Receipt Date: 20120619
  Transmission Date: 20120825
  Serious: Yes (Other)
  Sender: FDA-Public Use
  Company Number: None

PATIENT
  Age: 57 Year
  Sex: Male
  Weight: 65.7716 kg

DRUGS (1)
  1. AVELOX [Suspect]
     Indication: BRONCHITIS
     Dosage: ONE PILL DAILY FOR 7 DAYS
     Dates: start: 20111104, end: 20111110

REACTIONS (10)
  - MUSCULOSKELETAL PAIN [None]
  - PAIN [None]
  - IMPAIRED WORK ABILITY [None]
  - INSOMNIA [None]
  - ARTHRALGIA [None]
  - TENDON PAIN [None]
  - MYALGIA [None]
  - ANGER [None]
  - MOVEMENT DISORDER [None]
  - DRUG INEFFECTIVE [None]
